FAERS Safety Report 4563818-0 (Version None)
Quarter: 2005Q1

REPORT INFORMATION
  Report Type: 
  Country: None (occurrence: None)
  Receive Date: 20050128
  Receipt Date: 20040929
  Transmission Date: 20050727
  Serious: Yes (Life-Threatening)
  Sender: FDA-Public Use
  Company Number: PHBS2004JP12941

PATIENT
  Age: 39 Year
  Sex: Female

DRUGS (15)
  1. GENERAL ANAESTHETICS, OTHER [Suspect]
  2. ANAESTHETICS, LOCAL [Suspect]
  3. THIOPENTAL SODIUM [Concomitant]
  4. SUCCINYLCHOLINE CHLORIDE [Concomitant]
     Route: 065
  5. PROPOFOL [Concomitant]
     Route: 065
  6. VECURONIUM [Concomitant]
     Route: 065
  7. DINITROGEN MONOXIDE [Concomitant]
     Route: 065
  8. OXYGEN [Concomitant]
     Route: 065
  9. SEVOFLURANE [Concomitant]
     Route: 065
  10. XYLOCAINE [Concomitant]
     Dosage: 9 ML/D
  11. FENTANYL [Concomitant]
     Dosage: 50 UG/D
     Route: 065
  12. THIORIDAZINE HCL [Suspect]
     Indication: SCHIZOPHRENIA
     Route: 048
  13. QUETIAPINE FUMARATE [Suspect]
     Route: 048
  14. BIPERIDEN HYDROCHLORIDE TAB [Suspect]
     Route: 048
  15. EPERISONE HYDROCHLORIDE [Suspect]
     Route: 048

REACTIONS (9)
  - ANAPHYLACTIC REACTION [None]
  - BLOOD PRESSURE SYSTOLIC DECREASED [None]
  - FLUSHING [None]
  - HYSTERECTOMY [None]
  - OBSTRUCTIVE AIRWAYS DISORDER [None]
  - OXYGEN SATURATION DECREASED [None]
  - PCO2 DECREASED [None]
  - TACHYCARDIA [None]
  - TRACTION [None]
